FAERS Safety Report 15131301 (Version 1)
Quarter: 2018Q3

REPORT INFORMATION
  Report Type: Spontaneous
  Country: GB (occurrence: GB)
  Receive Date: 20180711
  Receipt Date: 20180711
  Transmission Date: 20181010
  Serious: Yes (Hospitalization, Other)
  Sender: FDA-Public Use
  Company Number: GB-GILEAD-2018-0349335

PATIENT
  Age: 39 Year
  Sex: Female
  Weight: 112 kg

DRUGS (5)
  1. OMEPRAZOLE SODIUM [Concomitant]
     Active Substance: OMEPRAZOLE SODIUM
  2. DOCUSATE [Concomitant]
     Active Substance: DOCUSATE
     Indication: HIV INFECTION
     Dosage: 200MG/245MG, QD
     Route: 048
     Dates: start: 20180511, end: 20180619
  3. RALTEGRAVIR. [Concomitant]
     Active Substance: RALTEGRAVIR
  4. TRUVADA [Suspect]
     Active Substance: EMTRICITABINE\TENOFOVIR DISOPROXIL FUMARATE
     Indication: HIV INFECTION
     Dosage: 200MG/245MG, QD
     Route: 048
     Dates: start: 20180511, end: 20180619
  5. CASSIA SENNA [Concomitant]
     Active Substance: HERBALS\SENNOSIDES

REACTIONS (5)
  - Acute kidney injury [Unknown]
  - Glomerulonephritis [Not Recovered/Not Resolved]
  - Nephrolithiasis [Unknown]
  - Vomiting [Unknown]
  - Blood creatinine increased [Not Recovered/Not Resolved]

NARRATIVE: CASE EVENT DATE: 20180614
